FAERS Safety Report 8876150 (Version 1)
Quarter: 2012Q4

REPORT INFORMATION
  Report Type: 
  Country: GB (occurrence: GB)
  Receive Date: 20121030
  Receipt Date: 20121030
  Transmission Date: 20130627
  Serious: Yes (Death, Other)
  Sender: FDA-Public Use
  Company Number: GB-BAYER-2012-112513

PATIENT
  Age: 52 Year
  Sex: Female

DRUGS (1)
  1. INTERFERON BETA - 1B [Suspect]
     Indication: RELAPSING-REMITTING MULTIPLE SCLEROSIS

REACTIONS (14)
  - Death [Fatal]
  - Amyotrophic lateral sclerosis [None]
  - Paraesthesia [None]
  - Pallor [None]
  - Nystagmus [None]
  - Hypokinesia [None]
  - Tongue disorder [None]
  - Reflexes abnormal [None]
  - Muscle atrophy [None]
  - Muscular weakness [None]
  - Paresis [None]
  - Muscle contractions involuntary [None]
  - Hyperreflexia [None]
  - Extensor plantar response [None]
